FAERS Safety Report 11230860 (Version 1)
Quarter: 2015Q2

REPORT INFORMATION
  Report Type: Spontaneous
  Country: US (occurrence: None)
  Receive Date: 20150629
  Receipt Date: 20150629
  Transmission Date: 20150821
  Serious: Yes (Life-Threatening, Disabling)
  Sender: FDA-Public Use
  Company Number: None

PATIENT
  Age: 54 Year
  Sex: Female
  Weight: 90.72 kg

DRUGS (22)
  1. METFORMIN [Concomitant]
     Active Substance: METFORMIN HYDROCHLORIDE
  2. FISH OIL [Concomitant]
     Active Substance: FISH OIL
  3. ATROVASTATIN [Concomitant]
     Active Substance: ATORVASTATIN CALCIUM
  4. GABAPENTIN. [Concomitant]
     Active Substance: GABAPENTIN
  5. ZYRTEC [Concomitant]
     Active Substance: CETIRIZINE HYDROCHLORIDE
  6. ESTRODIOL [Concomitant]
  7. NASONEX [Concomitant]
     Active Substance: MOMETASONE FUROATE
  8. TYLENOL [Concomitant]
     Active Substance: ACETAMINOPHEN
  9. GAS RELEASE [Concomitant]
  10. ALBUTEROL. [Concomitant]
     Active Substance: ALBUTEROL
  11. DICLOFENAC [Concomitant]
     Active Substance: DICLOFENAC
  12. TRAZEDONE [Concomitant]
  13. MULTIPLE VITAMINS [Concomitant]
     Active Substance: VITAMINS
  14. PAXEL [Concomitant]
     Active Substance: PACLITAXEL
  15. ABILIFY [Suspect]
     Active Substance: ARIPIPRAZOLE
     Indication: DEPRESSION
     Dosage: 1
     Route: 048
     Dates: start: 20141206, end: 20150411
  16. PROTONEX [Concomitant]
  17. MINERALS [Concomitant]
     Active Substance: MINERALS
  18. BIOTIN [Concomitant]
     Active Substance: BIOTIN
  19. FUROSEMIDE. [Concomitant]
     Active Substance: FUROSEMIDE
  20. SENNA [Concomitant]
     Active Substance: SENNA LEAF\SENNOSIDES\SENNOSIDES A AND B
  21. OXYBUTYNIN [Concomitant]
     Active Substance: OXYBUTYNIN
  22. NEURONTIN [Concomitant]
     Active Substance: GABAPENTIN

REACTIONS (6)
  - Weight increased [None]
  - Tongue disorder [None]
  - Blood glucose increased [None]
  - Hunger [None]
  - Dysphagia [None]
  - Product quality issue [None]

NARRATIVE: CASE EVENT DATE: 20150106
